FAERS Safety Report 4567342-0 (Version None)
Quarter: 2005Q1

REPORT INFORMATION
  Report Type: 
  Country: None (occurrence: None)
  Receive Date: 20050127
  Receipt Date: 20050112
  Transmission Date: 20050727
  Serious: Yes (Other)
  Sender: FDA-Public Use
  Company Number: S05-FRA-00148-01

PATIENT
  Age: 23 Year
  Sex: Female

DRUGS (1)
  1. PROPESS ^FERRING^ (DINOPROSTONE) [Suspect]
     Dosage: 10 MG ONCE VG
     Route: 067
     Dates: start: 20041119, end: 20041119

REACTIONS (1)
  - TOXIC SHOCK SYNDROME STAPHYLOCOCCAL [None]
